FAERS Safety Report 24109959 (Version 1)
Quarter: 2024Q3

REPORT INFORMATION
  Report Type: Spontaneous
  Country: US (occurrence: None)
  Receive Date: 20240717
  Receipt Date: 20240717
  Transmission Date: 20241016
  Serious: No
  Sender: Public
  Company Number: None

PATIENT
  Sex: Male

DRUGS (2)
  1. RECOMBINATE [Suspect]
     Active Substance: ANTIHEMOPHILIC FACTOR, HUMAN RECOMBINANT
     Indication: Factor VIII deficiency
     Dosage: 4000 UNITS 3 TIMES PER WEEK PIV?
     Route: 050
     Dates: start: 202212
  2. SOD CHLOR POSIFLUSH (10ML) [Concomitant]

REACTIONS (1)
  - Oesophageal haemorrhage [None]
